FAERS Safety Report 15706481 (Version 1)
Quarter: 2018Q4

REPORT INFORMATION
  Report Type: Spontaneous
  Country: US (occurrence: US)
  Receive Date: 20181210
  Receipt Date: 20181210
  Transmission Date: 20190205
  Serious: Yes (Hospitalization)
  Sender: FDA-Public Use
  Company Number: US-NOVOPROD-635934

PATIENT
  Age: 70 Year
  Sex: Female
  Weight: 83.9 kg

DRUGS (1)
  1. NOVOLIN 70/30 [Suspect]
     Active Substance: INSULIN HUMAN
     Indication: TYPE 2 DIABETES MELLITUS
     Dosage: SLIDING SCALE BETWEEN 20-90 UNITS
     Route: 058
     Dates: start: 2016

REACTIONS (3)
  - Skin laceration [Recovering/Resolving]
  - Blood glucose increased [Unknown]
  - Localised infection [Recovering/Resolving]

NARRATIVE: CASE EVENT DATE: 20181124
